FAERS Safety Report 18512840 (Version 1)
Quarter: 2020Q4

REPORT INFORMATION
  Report Type: Spontaneous
  Country: GB (occurrence: GB)
  Receive Date: 20201117
  Receipt Date: 20201117
  Transmission Date: 20210114
  Serious: Yes (Hospitalization, Other)
  Sender: FDA-Public Use
  Company Number: NVSC2020GB301645

PATIENT
  Age: 66 Year
  Sex: Male
  Weight: 73.39 kg

DRUGS (1)
  1. NAPROXEN. [Suspect]
     Active Substance: NAPROXEN
     Indication: GOUT
     Dosage: 500 MG, QD
     Route: 048
     Dates: start: 20201004, end: 20201011

REACTIONS (4)
  - Colitis ulcerative [Recovering/Resolving]
  - Diarrhoea [Unknown]
  - Pain [Unknown]
  - Rectal haemorrhage [Recovering/Resolving]

NARRATIVE: CASE EVENT DATE: 20201009
